FAERS Safety Report 24807528 (Version 3)
Quarter: 2025Q2

REPORT INFORMATION
  Report Type: Spontaneous
  Country: US (occurrence: US)
  Receive Date: 20250105
  Receipt Date: 20250409
  Transmission Date: 20250717
  Serious: No
  Sender: NOVARTIS
  Company Number: US-002147023-NVSC2024US246995

PATIENT
  Sex: Female

DRUGS (1)
  1. COSENTYX [Suspect]
     Active Substance: SECUKINUMAB
     Indication: Product used for unknown indication
     Dosage: 300 MG, QW (INJECTION)
     Route: 050

REACTIONS (5)
  - Incorrect dose administered [Unknown]
  - Needle issue [Unknown]
  - Product storage error [Unknown]
  - Device leakage [Unknown]
  - Wrong technique in device usage process [Unknown]
